FAERS Safety Report 9063341 (Version 1)
Quarter: 2013Q1

REPORT INFORMATION
  Report Type: Report from Study
  Country: US (occurrence: US)
  Receive Date: 20130129
  Receipt Date: 20130129
  Transmission Date: 20140127
  Serious: No
  Sender: FDA-Public Use
  Company Number: US-ABBOTT-12P-163-0947309-00

PATIENT
  Sex: Female
  Weight: 56.75 kg

DRUGS (15)
  1. HUMIRA 40 MG/0.8 ML PEN [Suspect]
     Indication: RHEUMATOID ARTHRITIS
     Dates: start: 20120518, end: 20120615
  2. ARAVA [Concomitant]
     Indication: RHEUMATOID ARTHRITIS
  3. ASPIRIN [Concomitant]
     Indication: CARDIOVASCULAR EVENT PROPHYLAXIS
  4. CITRUCAL WITH D [Concomitant]
     Indication: VITAMIN SUPPLEMENTATION
  5. DILITIZEM [Concomitant]
     Indication: HYPERTENSION
  6. DOXYCYCLINE [Concomitant]
     Indication: RHEUMATOID ARTHRITIS
  7. FOLIC ACID [Concomitant]
     Indication: RHEUMATOID ARTHRITIS
  8. CHLOR-CON [Concomitant]
     Indication: HYPOKALAEMIA
  9. LEVOTHYROXINE [Concomitant]
     Indication: HYPOTHYROIDISM
  10. LIPITOR [Concomitant]
     Indication: BLOOD CHOLESTEROL INCREASED
  11. OMEGA 3 [Concomitant]
     Indication: VITAMIN SUPPLEMENTATION
  12. VALIUM [Concomitant]
     Indication: ANXIETY
  13. VITAMIN B COMPLEX [Concomitant]
     Indication: VITAMIN SUPPLEMENTATION
  14. VITAMIN D3 [Concomitant]
     Indication: VITAMIN SUPPLEMENTATION
  15. ZOLPIDEM [Concomitant]
     Indication: INSOMNIA

REACTIONS (4)
  - Urticaria [Not Recovered/Not Resolved]
  - Pruritus [Recovering/Resolving]
  - Burning sensation [Recovering/Resolving]
  - Rash generalised [Not Recovered/Not Resolved]
